FAERS Safety Report 24646935 (Version 1)
Quarter: 2024Q4

REPORT INFORMATION
  Report Type: Spontaneous
  Country: GB (occurrence: GB)
  Receive Date: 20241121
  Receipt Date: 20241121
  Transmission Date: 20250115
  Serious: Yes (Other)
  Sender: ASCEND THERAPEUTICS US, LLC
  Company Number: GB-Ascend Therapeutics US, LLC-2165544

PATIENT
  Age: 54 Year
  Sex: Female

DRUGS (16)
  1. ESTROGEL [Suspect]
     Active Substance: ESTRADIOL
     Indication: Menopause
     Dates: start: 20200306, end: 202312
  2. ESTROGEL [Suspect]
     Active Substance: ESTRADIOL
     Indication: Hormone replacement therapy
  3. UTROGESTAN [Suspect]
     Active Substance: PROGESTERONE
     Dates: start: 20230824
  4. AMOXICILLIN [Concomitant]
     Active Substance: AMOXICILLIN
  5. DOXYCYCLINE [Concomitant]
     Active Substance: DOXYCYCLINE
  6. DOXYCYCLINE [Concomitant]
     Active Substance: DOXYCYCLINE
  7. AMOROLFINE [Concomitant]
     Active Substance: AMOROLFINE
  8. Betamethasone valerate/ Fusidic acid [Concomitant]
  9. CLOTRIMAZOLE [Concomitant]
     Active Substance: CLOTRIMAZOLE
  10. CLOTRIMAZOLE [Concomitant]
     Active Substance: CLOTRIMAZOLE
  11. Hylo-care eye drops [Concomitant]
     Dates: start: 20171027
  12. ESTRADIOL [Suspect]
     Active Substance: ESTRADIOL
     Dates: start: 20240405
  13. ESTRADIOL [Suspect]
     Active Substance: ESTRADIOL
     Dates: start: 202003
  14. ESTRADIOL [Suspect]
     Active Substance: ESTRADIOL
     Dates: start: 202003
  15. ESTRADIOL [Suspect]
     Active Substance: ESTRADIOL
     Dates: start: 202312
  16. ESTRADIOL [Suspect]
     Active Substance: ESTRADIOL
     Dates: start: 20200306, end: 202312

REACTIONS (13)
  - Pertussis [Unknown]
  - Product prescribing error [Unknown]
  - Wrong technique in product usage process [Unknown]
  - Product design issue [Unknown]
  - Product quality issue [Unknown]
  - Product formulation issue [Unknown]
  - Therapeutic product effect decreased [Unknown]
  - Device malfunction [Unknown]
  - Incorrect dose administered by product [Unknown]
  - Feeling abnormal [Unknown]
  - Pain [Unknown]
  - Blood oestrogen decreased [Unknown]
  - Poor quality sleep [Unknown]

NARRATIVE: CASE EVENT DATE: 20231201
